FAERS Safety Report 9819343 (Version 1)
Quarter: 2014Q1

REPORT INFORMATION
  Report Type: Spontaneous
  Country: FR (occurrence: None)
  Receive Date: 20140113
  Receipt Date: 20140113
  Transmission Date: 20141002
  Serious: Yes (Hospitalization)
  Sender: FDA-Public Use
  Company Number: NGX_02196_2014

PATIENT
  Sex: 0

DRUGS (1)
  1. QUTENZA [Suspect]
     Indication: NEUROPATHY PERIPHERAL
     Dosage: ([PATCHES APPLIED FOR{1 HOUR] DF TOPICAL)
     Route: 061

REACTIONS (2)
  - Application site pain [None]
  - Incorrect drug administration duration [None]
